FAERS Safety Report 25401551 (Version 1)
Quarter: 2025Q2

REPORT INFORMATION
  Report Type: Spontaneous
  Country: US (occurrence: None)
  Receive Date: 20250603
  Receipt Date: 20250603
  Transmission Date: 20250716
  Serious: No
  Sender: FDA-CTU
  Company Number: None

PATIENT
  Age: 64 Year
  Sex: Male
  Weight: 117 kg

DRUGS (1)
  1. METHOCARBAMOL [Suspect]
     Active Substance: METHOCARBAMOL
     Indication: Muscle spasms

REACTIONS (4)
  - Hypotension [None]
  - Hyponatraemia [None]
  - Orthostatic intolerance [None]
  - Therapy cessation [None]

NARRATIVE: CASE EVENT DATE: 20250102
